FAERS Safety Report 15493836 (Version 6)
Quarter: 2018Q4

REPORT INFORMATION
  Report Type: Report from Study
  Country: US (occurrence: US)
  Receive Date: 20181012
  Receipt Date: 20181216
  Transmission Date: 20190205
  Serious: Yes (Hospitalization)
  Sender: FDA-Public Use
  Company Number: PHHO2018US009643

PATIENT
  Age: 57 Year
  Sex: Female
  Weight: 58.2 kg

DRUGS (4)
  1. BLINDED NO TREATMENT RECEIVED [Suspect]
     Active Substance: INVESTIGATIONAL PRODUCT
     Indication: BREAST CANCER
     Dosage: CODE NOT BROKEN
     Route: 048
     Dates: start: 20180802, end: 20180812
  2. COMPARATOR ANASTROZOLE [Suspect]
     Active Substance: ANASTROZOLE
     Indication: BREAST CANCER
     Dosage: 1 MG, QD
     Route: 048
     Dates: start: 20180802, end: 20180824
  3. AFINITOR [Suspect]
     Active Substance: EVEROLIMUS
     Indication: BREAST CANCER
     Dosage: CODE NOT BROKEN
     Route: 048
     Dates: start: 20180802, end: 20180812
  4. BLINDED PLACEBO [Suspect]
     Active Substance: INVESTIGATIONAL PRODUCT
     Indication: BREAST CANCER
     Dosage: CODE NOT BROKEN
     Route: 048
     Dates: start: 20180802, end: 20180812

REACTIONS (3)
  - Pneumonitis [Recovering/Resolving]
  - Pulmonary embolism [Recovered/Resolved]
  - Lung infection [Not Recovered/Not Resolved]

NARRATIVE: CASE EVENT DATE: 20180813
